FAERS Safety Report 4326047-1 (Version None)
Quarter: 2004Q1

REPORT INFORMATION
  Report Type: 
  Country: None (occurrence: None)
  Receive Date: 20040323
  Receipt Date: 20040308
  Transmission Date: 20041129
  Serious: Yes (Hospitalization)
  Sender: FDA-Public Use
  Company Number: 2004-113682-NL

PATIENT
  Age: 53 Year
  Sex: Female

DRUGS (12)
  1. REMERON [Suspect]
     Indication: DEPRESSION
     Dosage: 15 MG QD ORAL
     Route: 048
     Dates: start: 20040213
  2. MULTIVITAMINES [Concomitant]
  3. DOCUSATE SODIUM [Concomitant]
  4. RANITIDINE [Concomitant]
  5. ASCORBIC ACID [Concomitant]
  6. MAGNESIUM [Concomitant]
  7. ASPIRIN [Concomitant]
  8. METOCLOPRAMIDE [Concomitant]
  9. OXYCODONE [Concomitant]
  10. APAP TAB [Concomitant]
  11. PROCHLORPROMAZINE [Concomitant]
  12. DIPHENHYDRAMINE HCL [Concomitant]

REACTIONS (3)
  - DEHYDRATION [None]
  - HEPATIC FUNCTION ABNORMAL [None]
  - RENAL FAILURE [None]
